FAERS Safety Report 7049572-1 (Version None)
Quarter: 2010Q4

REPORT INFORMATION
  Report Type: 
  Country: None (occurrence: None)
  Receive Date: 20101018
  Receipt Date: 20101007
  Transmission Date: 20110411
  Serious: Yes (Other)
  Sender: FDA-Public Use
  Company Number: US-WYE-H18142910

PATIENT
  Sex: Female
  Weight: 63.56 kg

DRUGS (6)
  1. PRISTIQ [Suspect]
     Indication: DEPRESSION
     Route: 048
     Dates: start: 20100101, end: 20100101
  2. PRISTIQ [Suspect]
     Dosage: 50 MG EVERY OTHER DAY OR 25 MG DAILY
     Dates: start: 20100101, end: 20101005
  3. SERTRALINE HYDROCHLORIDE [Suspect]
     Indication: DEPRESSION
     Route: 048
  4. LIPITOR [Concomitant]
     Dosage: UNKNOWN
  5. LEVOTHYROXINE SODIUM [Concomitant]
     Dosage: UNKNOWN
  6. CYTOMEL [Concomitant]
     Dosage: UNKNOWN

REACTIONS (9)
  - BIPOLAR DISORDER [None]
  - DEPRESSION [None]
  - DRUG INEFFECTIVE [None]
  - DRUG WITHDRAWAL SYNDROME [None]
  - FEELING ABNORMAL [None]
  - HYPOAESTHESIA FACIAL [None]
  - PARAESTHESIA [None]
  - SUICIDAL IDEATION [None]
  - SWOLLEN TONGUE [None]
